FAERS Safety Report 19057024 (Version 2)
Quarter: 2021Q1

REPORT INFORMATION
  Report Type: Spontaneous
  Country: US (occurrence: US)
  Receive Date: 20210324
  Receipt Date: 20210328
  Transmission Date: 20210420
  Serious: No
  Sender: FDA-Public Use
  Company Number: US-TEVA-2021-US-1894458

PATIENT
  Age: 57 Year
  Sex: Female

DRUGS (2)
  1. LORAZEPAM TEVA [Suspect]
     Active Substance: LORAZEPAM
     Route: 065
     Dates: start: 20210313
  2. LORAZEPAM TEVA [Suspect]
     Active Substance: LORAZEPAM
     Indication: ANXIETY
     Route: 065
     Dates: start: 202008

REACTIONS (2)
  - Palpitations [Recovered/Resolved]
  - Product quality issue [Unknown]

NARRATIVE: CASE EVENT DATE: 20210313
